FAERS Safety Report 23687929 (Version 2)
Quarter: 2024Q2

REPORT INFORMATION
  Report Type: Report from Study
  Country: US (occurrence: US)
  Receive Date: 20240329
  Receipt Date: 20240425
  Transmission Date: 20240716
  Serious: Yes (Hospitalization, Other)
  Sender: FDA-Public Use
  Company Number: US-VERTEX PHARMACEUTICALS-2024-004308

PATIENT
  Age: 9 Year
  Sex: Female
  Weight: 29 kg

DRUGS (27)
  1. TRIKAFTA [Suspect]
     Active Substance: ELEXACAFTOR\IVACAFTOR\TEZACAFTOR
     Indication: Cystic fibrosis
     Dosage: TWO TABS IN AM AND ONE TAB IN PM
     Route: 048
     Dates: start: 20231212
  2. PROAIR HFA [Concomitant]
     Active Substance: ALBUTEROL SULFATE
     Dosage: PROAIR GEQ
  3. PROAIR HFA [Concomitant]
     Active Substance: ALBUTEROL SULFATE
     Dosage: 2.5 MG
     Route: 055
  4. PROAIR HFA [Concomitant]
     Active Substance: ALBUTEROL SULFATE
     Dosage: 0.083%
     Dates: start: 20230517
  5. PROAIR HFA [Concomitant]
     Active Substance: ALBUTEROL SULFATE
     Dosage: 2 PUFFS TWO TIME A DAY
     Dates: start: 20230601
  6. ZITHROMAX [Concomitant]
     Active Substance: AZITHROMYCIN DIHYDRATE
     Dosage: 1 TAB EVERY MON,WED, FRI
     Route: 048
     Dates: start: 20230906
  7. CAYSTON [Concomitant]
     Active Substance: AZTREONAM
     Dosage: THREE TIME A DAY DAILY ALTERNATE DAYS ON AND OFF
     Dates: start: 20230419
  8. PULMOZYME [Concomitant]
     Active Substance: DORNASE ALFA
     Dosage: 2.5 ML, BID
     Route: 055
     Dates: start: 20221216
  9. TOBI [Concomitant]
     Active Substance: TOBRAMYCIN
     Dosage: 300 MG/5ML, TOBI GEQ
  10. VITAMIN D3 [Concomitant]
     Active Substance: CHOLECALCIFEROL
     Dosage: 5000 UNIT
  11. SYMBICORT [Concomitant]
     Active Substance: BUDESONIDE\FORMOTEROL FUMARATE DIHYDRATE
     Dosage: 2 PUFFS
     Dates: start: 20220519
  12. FORTAZ [Concomitant]
     Active Substance: CEFTAZIDIME SODIUM
     Dosage: 75MG/KG/D, Q6HR
     Route: 042
  13. SODIUM CHLORIDE [Concomitant]
     Active Substance: SODIUM CHLORIDE
     Dosage: UNK, BID
     Dates: start: 20230222
  14. CREON [Concomitant]
     Active Substance: PANCRELIPASE AMYLASE\PANCRELIPASE LIPASE\PANCRELIPASE PROTEASE
     Dosage: 3 CAPSULES PRN
     Route: 048
     Dates: start: 20240201
  15. CREON [Concomitant]
     Active Substance: PANCRELIPASE AMYLASE\PANCRELIPASE LIPASE\PANCRELIPASE PROTEASE
     Dosage: 3 CAPSULE
     Route: 048
  16. CREON [Concomitant]
     Active Substance: PANCRELIPASE AMYLASE\PANCRELIPASE LIPASE\PANCRELIPASE PROTEASE
     Dosage: 4 CAPS THREE TIME A DAY
     Route: 048
  17. CREON [Concomitant]
     Active Substance: PANCRELIPASE AMYLASE\PANCRELIPASE LIPASE\PANCRELIPASE PROTEASE
     Dosage: 1-2 CAPS 3 TIMES A DAY
     Route: 048
  18. VITAMIN D [Concomitant]
     Active Substance: VITAMIN D NOS
     Dosage: 1 CAPSULE, 125 MG
     Route: 048
     Dates: start: 20240201
  19. XOPENEX [Concomitant]
     Active Substance: LEVALBUTEROL HYDROCHLORIDE
     Indication: Bronchopulmonary aspergillosis allergic
     Dosage: 4 TIMES A DAY
     Route: 048
  20. CEFTAZ [Concomitant]
     Route: 042
  21. PERIACTIN [Concomitant]
     Active Substance: CYPROHEPTADINE HYDROCHLORIDE
     Dosage: 1 TAB AT BEDTIME
     Route: 048
     Dates: start: 20240314
  22. EPIPEN [Concomitant]
     Active Substance: EPINEPHRINE
     Dosage: UNK
     Route: 030
     Dates: start: 20230516
  23. ATROVENT [Concomitant]
     Active Substance: IPRATROPIUM BROMIDE
     Indication: Wheezing
     Dosage: EVERY 4 HOURS
     Dates: start: 20231103
  24. ATROVENT [Concomitant]
     Active Substance: IPRATROPIUM BROMIDE
     Indication: Cough
  25. ATROVENT [Concomitant]
     Active Substance: IPRATROPIUM BROMIDE
     Indication: Dyspnoea
  26. CLARITIN [Concomitant]
     Active Substance: LORATADINE
     Dosage: 5MG/5ML
     Route: 048
  27. XOLAIR [Concomitant]
     Active Substance: OMALIZUMAB
     Dosage: EVERY OTHER WEEK, 150MG/ML
     Route: 058
     Dates: start: 20230614

REACTIONS (4)
  - Infective pulmonary exacerbation of cystic fibrosis [Recovering/Resolving]
  - Nasal polyps [Recovered/Resolved]
  - Sinusitis [Unknown]
  - Coronavirus test positive [Recovered/Resolved]

NARRATIVE: CASE EVENT DATE: 20240304
